FAERS Safety Report 5838181-5 (Version None)
Quarter: 2008Q3

REPORT INFORMATION
  Report Type: 
  Country: None (occurrence: None)
  Receive Date: 20080808
  Receipt Date: 20080728
  Transmission Date: 20090109
  Serious: Yes (Hospitalization, Other)
  Sender: FDA-Public Use
  Company Number: US-JNJFOC-20080501528

PATIENT
  Sex: Female
  Weight: 57.15 kg

DRUGS (4)
  1. REMICADE [Suspect]
     Route: 042
  2. REMICADE [Suspect]
     Route: 042
  3. REMICADE [Suspect]
     Indication: RHEUMATOID ARTHRITIS
     Route: 042
  4. CLINDAMYCIN HCL [Suspect]
     Indication: INFECTED CYST
     Route: 042

REACTIONS (2)
  - CLOSTRIDIAL INFECTION [None]
  - INFECTED CYST [None]
